FAERS Safety Report 6554506-X (Version None)
Quarter: 2010Q1

REPORT INFORMATION
  Report Type: 
  Country: None (occurrence: None)
  Receive Date: 20100127
  Receipt Date: 20100114
  Transmission Date: 20100710
  Serious: Yes (Other)
  Sender: FDA-Public Use
  Company Number: PHHY2010FR01885

PATIENT
  Sex: Male

DRUGS (2)
  1. ZOMETA [Suspect]
     Indication: LUNG ADENOCARCINOMA RECURRENT
  2. GEMZAR [Suspect]
     Dosage: 800 MG, UNK
     Route: 042

REACTIONS (4)
  - CARDIAC FAILURE ACUTE [None]
  - FACE OEDEMA [None]
  - OEDEMA PERIPHERAL [None]
  - PULMONARY OEDEMA [None]
